FAERS Safety Report 25082445 (Version 1)
Quarter: 2025Q1

REPORT INFORMATION
  Report Type: Spontaneous
  Country: CN (occurrence: CN)
  Receive Date: 20250317
  Receipt Date: 20250317
  Transmission Date: 20250409
  Serious: Yes (Other)
  Sender: NOVAST LABORATORIES LTD
  Company Number: CN-NOVAST LABORATORIES INC.-2025NOV000202

PATIENT

DRUGS (2)
  1. METOPROLOL SUCCINATE [Suspect]
     Active Substance: METOPROLOL SUCCINATE
     Indication: Essential hypertension
     Route: 048
     Dates: start: 20250117, end: 20250223
  2. SACUBITRIL\VALSARTAN [Concomitant]
     Active Substance: SACUBITRIL\VALSARTAN
     Indication: Essential hypertension
     Route: 048
     Dates: end: 20250305

REACTIONS (1)
  - Sexual dysfunction [Recovering/Resolving]

NARRATIVE: CASE EVENT DATE: 20250223
